FAERS Safety Report 10472180 (Version 1)
Quarter: 2014Q3

REPORT INFORMATION
  Report Type: Spontaneous
  Country: US (occurrence: None)
  Receive Date: 20140923
  Receipt Date: 20140923
  Transmission Date: 20150326
  Serious: Yes (Disabling)
  Sender: FDA-Public Use
  Company Number: None

PATIENT
  Age: 66 Year
  Sex: Female
  Weight: 63.5 kg

DRUGS (2)
  1. CIPROFLOXACIN. [Suspect]
     Active Substance: CIPROFLOXACIN
     Indication: COLITIS
     Route: 048
     Dates: start: 20140318, end: 20140324
  2. CIPROFLOXACIN. [Suspect]
     Active Substance: CIPROFLOXACIN
     Indication: URINARY TRACT INFECTION
     Route: 048
     Dates: start: 20140318, end: 20140324

REACTIONS (16)
  - Dysstasia [None]
  - Arthralgia [None]
  - Alopecia [None]
  - Sciatica [None]
  - Musculoskeletal pain [None]
  - Crying [None]
  - Muscle tightness [None]
  - Groin pain [None]
  - Musculoskeletal stiffness [None]
  - Peripheral swelling [None]
  - Fatigue [None]
  - Colitis [None]
  - Pain in extremity [None]
  - Confusional state [None]
  - Polyp [None]
  - Swelling [None]

NARRATIVE: CASE EVENT DATE: 20140331
